FAERS Safety Report 8076702-5 (Version None)
Quarter: 2012Q1

REPORT INFORMATION
  Report Type: 
  Country: None (occurrence: None)
  Receive Date: 20120127
  Receipt Date: 20120126
  Transmission Date: 20120608
  Serious: No
  Sender: FDA-Public Use
  Company Number: US-BAYER-2012-008745

PATIENT
  Age: 54 Year
  Sex: Female

DRUGS (3)
  1. VITAMIN TAB [Concomitant]
  2. AVELOX [Suspect]
     Indication: UPPER RESPIRATORY TRACT INFECTION
  3. AVELOX [Suspect]
     Indication: SINUSITIS
     Dosage: 400 MG, QD
     Route: 048
     Dates: start: 20120116, end: 20120118

REACTIONS (2)
  - DIARRHOEA [None]
  - DIZZINESS [None]
